FAERS Safety Report 8312367-2 (Version None)
Quarter: 2012Q2

REPORT INFORMATION
  Report Type: 
  Country: None (occurrence: None)
  Receive Date: 20120425
  Receipt Date: 20120423
  Transmission Date: 20120825
  Serious: No
  Sender: FDA-Public Use
  Company Number: US-AMGEN-QUU434619

PATIENT
  Age: 57 Year
  Sex: Male

DRUGS (7)
  1. ALLOPURINOL [Concomitant]
     Route: 048
  2. GLYBURIDE [Concomitant]
     Route: 048
  3. FUROSEMIDE [Concomitant]
     Route: 048
  4. ENBREL [Suspect]
     Indication: PSORIATIC ARTHROPATHY
     Dosage: 50 MG, QWK
     Route: 058
     Dates: start: 20030601
  5. AMLODIPINE [Concomitant]
     Route: 048
  6. METFORMIN [Concomitant]
     Route: 048
  7. CLONIDINE [Concomitant]
     Route: 048

REACTIONS (2)
  - BACK PAIN [None]
  - RESPIRATORY TRACT INFECTION [None]
